FAERS Safety Report 23026018 (Version 3)
Quarter: 2023Q4

REPORT INFORMATION
  Report Type: Report from Study
  Country: CN (occurrence: None)
  Receive Date: 20231004
  Receipt Date: 20231127
  Transmission Date: 20240110
  Serious: Yes (Hospitalization)
  Sender: FDA-Public Use
  Company Number: CN-ROCHE-3431207

PATIENT
  Age: 50 Year
  Sex: Female
  Weight: 45 kg

DRUGS (3)
  1. BEVACIZUMAB [Suspect]
     Active Substance: BEVACIZUMAB
     Indication: Neoplasm
     Dosage: MOST RECENT DOSE : 30/AUG/2023
     Route: 042
     Dates: start: 20230809
  2. Y-101D [Suspect]
     Active Substance: Y-101D
     Indication: Neoplasm
     Dosage: DF : 8ML AND STRENGTH : 240MG?MOST RECENT DOSE : 30/AUG/2023
     Route: 042
     Dates: start: 20230809
  3. OXYCODONE HYDROCHLORIDE [Concomitant]
     Active Substance: OXYCODONE HYDROCHLORIDE
     Indication: Abdominal pain
     Route: 048
     Dates: start: 20230606

REACTIONS (1)
  - Pyrexia [Recovered/Resolved]

NARRATIVE: CASE EVENT DATE: 20230927
